FAERS Safety Report 25681031 (Version 1)
Quarter: 2025Q3

REPORT INFORMATION
  Report Type: Spontaneous
  Country: US (occurrence: None)
  Receive Date: 20250814
  Receipt Date: 20250814
  Transmission Date: 20251021
  Serious: Yes (Death, Hospitalization)
  Sender: FDA-CTU
  Company Number: None

PATIENT
  Age: 23 Year
  Sex: Male
  Weight: 74.3 kg

DRUGS (6)
  1. CYTARABINE [Suspect]
     Active Substance: CYTARABINE
  2. DEXAMETHASONE [Suspect]
     Active Substance: DEXAMETHASONE
  3. DOXORUBICIN HYDROCHLORIDE [Suspect]
     Active Substance: DOXORUBICIN HYDROCHLORIDE
  4. METHOTREXATE [Suspect]
     Active Substance: METHOTREXATE
  5. ONCASPAR [Suspect]
     Active Substance: PEGASPARGASE
  6. VINCRISTINE SULFATE [Suspect]
     Active Substance: VINCRISTINE SULFATE

REACTIONS (10)
  - B-cell type acute leukaemia [None]
  - Disease recurrence [None]
  - Haemodynamic instability [None]
  - Febrile neutropenia [None]
  - Haemorrhage intracranial [None]
  - Cardiac arrest [None]
  - Sepsis [None]
  - Hyperglycaemia [None]
  - Encephalopathy [None]
  - Bacillus test positive [None]

NARRATIVE: CASE EVENT DATE: 20250802
